FAERS Safety Report 8694250 (Version 2)
Quarter: 2012Q4

REPORT INFORMATION
  Report Type: 
  Country: US (occurrence: US)
  Receive Date: 20120731
  Receipt Date: 20120831
  Transmission Date: 20130627
  Serious: Yes (Death)
  Sender: FDA-Public Use
  Company Number: US-PFIZER INC-2012180013

PATIENT
  Age: 84 Year
  Sex: Female

DRUGS (1)
  1. REVATIO [Suspect]
     Dosage: 40 mg, 3x/day
     Dates: start: 20101027, end: 20120628

REACTIONS (2)
  - Disease progression [Fatal]
  - Pancreatic carcinoma [Fatal]
